FAERS Safety Report 18358736 (Version 1)
Quarter: 2020Q4

REPORT INFORMATION
  Report Type: Spontaneous
  Country: US (occurrence: US)
  Receive Date: 20201008
  Receipt Date: 20201008
  Transmission Date: 20210114
  Serious: Yes (Hospitalization, Other)
  Sender: FDA-Public Use
  Company Number: US-ALVOGEN-2020-ALVOGEN-114783

PATIENT
  Age: 36 Year
  Sex: Female

DRUGS (2)
  1. OXYCODONE [Suspect]
     Active Substance: OXYCODONE
     Indication: MIGRAINE
     Dosage: PRO RE NATA (PRN).
  2. LAMOTRIGINE. [Suspect]
     Active Substance: LAMOTRIGINE
     Indication: BIPOLAR DISORDER
     Route: 048

REACTIONS (5)
  - Drug abuse [Recovered/Resolved]
  - Weight decreased [Unknown]
  - Bedridden [Recovering/Resolving]
  - Medication overuse headache [Recovered/Resolved]
  - Meningitis aseptic [Recovering/Resolving]
